FAERS Safety Report 21217107 (Version 3)
Quarter: 2022Q4

REPORT INFORMATION
  Report Type: Spontaneous
  Country: US (occurrence: US)
  Receive Date: 20220816
  Receipt Date: 20221018
  Transmission Date: 20230113
  Serious: Yes (Other)
  Sender: FDA-Public Use
  Company Number: US-BRISTOL-MYERS SQUIBB COMPANY-2022-090596

PATIENT
  Age: 91 Year
  Sex: Female

DRUGS (2)
  1. SPRYCEL [Suspect]
     Active Substance: DASATINIB
     Indication: Chronic myeloid leukaemia
     Route: 048
     Dates: start: 20200723
  2. SPRYCEL [Suspect]
     Active Substance: DASATINIB
     Indication: Philadelphia chromosome positive

REACTIONS (5)
  - Ear infection [Unknown]
  - Dyspnoea [Unknown]
  - Hypoacusis [Unknown]
  - Intentional product use issue [Unknown]
  - Deafness unilateral [Not Recovered/Not Resolved]

NARRATIVE: CASE EVENT DATE: 20220927
